FAERS Safety Report 8708727 (Version 2)
Quarter: 2013Q4

REPORT INFORMATION
  Report Type: Spontaneous
  Country: US (occurrence: US)
  Receive Date: 20120806
  Receipt Date: 20131101
  Transmission Date: 20140711
  Serious: No
  Sender: FDA-Public Use
  Company Number: US-009507513-1207USA007888

PATIENT
  Age: 55 Year
  Sex: Female

DRUGS (6)
  1. VICTRELIS [Suspect]
     Dosage: 800 MG, Q8H WITH MEALS
     Route: 048
  2. PEG-INTRON [Suspect]
     Dosage: UNK
  3. REBETOL [Suspect]
  4. SINGULAIR [Concomitant]
  5. ALBUTEROL [Concomitant]
  6. MELOXICAM [Concomitant]

REACTIONS (1)
  - Irritability [Unknown]
